FAERS Safety Report 5830665-9 (Version None)
Quarter: 2008Q3

REPORT INFORMATION
  Report Type: 
  Country: None (occurrence: None)
  Receive Date: 20080801
  Receipt Date: 20070925
  Transmission Date: 20090109
  Serious: No
  Sender: FDA-Public Use
  Company Number: US-BRISTOL-MYERS SQUIBB COMPANY-13918768

PATIENT
  Age: 84 Year
  Sex: Female
  Weight: 48 kg

DRUGS (6)
  1. COUMADIN [Suspect]
     Dosage: 09/2007 TO 21/SEP/2007 DOSE WAS 2 MG DAILY.
     Route: 048
     Dates: start: 20070921
  2. LIPITOR [Concomitant]
  3. ASPIRIN [Concomitant]
  4. DIGITEK [Concomitant]
  5. FOLIC ACID [Concomitant]
  6. ALTACE [Concomitant]

REACTIONS (2)
  - DIZZINESS [None]
  - SKIN DISCOLOURATION [None]
